FAERS Safety Report 23133009 (Version 6)
Quarter: 2024Q4

REPORT INFORMATION
  Report Type: Spontaneous
  Country: PL (occurrence: PL)
  Receive Date: 20231101
  Receipt Date: 20241224
  Transmission Date: 20250114
  Serious: Yes (Hospitalization, Other)
  Sender: AUROBINDO
  Company Number: PL-SYNOPTIS-048b/ 048d-L-0006

PATIENT
  Age: 29 Year
  Sex: Male

DRUGS (11)
  1. ACETAMINOPHEN [Interacting]
     Active Substance: ACETAMINOPHEN
     Indication: Headache
     Dosage: 1000 MILLIGRAM, FOUR TIMES/DAY
     Route: 065
  2. SERTRALINE [Interacting]
     Active Substance: SERTRALINE HYDROCHLORIDE
     Indication: Depression
     Dosage: 100 MILLIGRAM, ONCE A DAY
     Route: 065
  3. BUPROPION HYDROCHLORIDE\NALTREXONE HYDROCHLORIDE [Interacting]
     Active Substance: BUPROPION HYDROCHLORIDE\NALTREXONE HYDROCHLORIDE
     Indication: Obesity
     Dosage: 1 DOSAGE FORM, TWO TIMES A DAY ( 2 TIMES IN AWEEK (1 TABLET, 90 MG/8 MG, 2X PER DAY))
     Route: 065
  4. BUPROPION HYDROCHLORIDE\NALTREXONE HYDROCHLORIDE [Interacting]
     Active Substance: BUPROPION HYDROCHLORIDE\NALTREXONE HYDROCHLORIDE
     Dosage: 2 DOSAGE FORM, TWO TIMES A DAY (2 TABLETS, 90 MG/8 MG, 2X PER DAY)
     Route: 065
  5. OMEPRAZOLE SODIUM [Interacting]
     Active Substance: OMEPRAZOLE SODIUM
     Indication: Burning sensation
     Dosage: 40 MILLIGRAM, ONCE A DAY
     Route: 065
  6. OMEPRAZOLE SODIUM [Interacting]
     Active Substance: OMEPRAZOLE SODIUM
     Indication: Eructation
  7. OMEPRAZOLE SODIUM [Interacting]
     Active Substance: OMEPRAZOLE SODIUM
     Indication: Oesophageal pain
  8. OMEPRAZOLE SODIUM [Interacting]
     Active Substance: OMEPRAZOLE SODIUM
     Indication: Dyspepsia
  9. ACETAMINOPHEN [Suspect]
     Active Substance: ACETAMINOPHEN
     Indication: Analgesic therapy
     Dosage: 1000 MILLIGRAM, EVERY 4 DAYS
     Route: 048
  10. SEMAGLUTIDE [Interacting]
     Active Substance: SEMAGLUTIDE
     Indication: Obesity
     Dosage: 0.25 MILLIGRAM, EVERY WEEK
     Route: 058
  11. SEMAGLUTIDE [Interacting]
     Active Substance: SEMAGLUTIDE
     Dosage: 1 MILLIGRAM, EVERY WEEK
     Route: 058

REACTIONS (14)
  - Oedematous pancreatitis [Recovered/Resolved]
  - Pancreatitis [Recovered/Resolved]
  - Headache [Recovered/Resolved]
  - Dyspepsia [Recovered/Resolved]
  - Nausea [Recovered/Resolved]
  - Abdominal pain upper [Recovered/Resolved]
  - Gastrointestinal oedema [Recovered/Resolved]
  - Drug interaction [Recovered/Resolved]
  - Pancreatic enlargement [Recovered/Resolved]
  - Hypopnoea [Recovered/Resolved]
  - Abdominal wall disorder [Recovered/Resolved]
  - Pyrexia [Recovered/Resolved]
  - Gastrooesophageal reflux disease [Unknown]
  - Oesophageal pain [Unknown]
